FAERS Safety Report 8880770 (Version 2)
Quarter: 2012Q4

REPORT INFORMATION
  Report Type: 
  Country: FR (occurrence: FR)
  Receive Date: 20121101
  Receipt Date: 20121218
  Transmission Date: 20130627
  Serious: Yes (Hospitalization)
  Sender: FDA-Public Use
  Company Number: FR-GLAXOSMITHKLINE-B0840224A

PATIENT
  Age: 45 Year
  Sex: Female

DRUGS (16)
  1. ZOPHREN [Suspect]
     Indication: PRODUCT USED FOR UNKNOWN INDICATION
     Dosage: 8MG Unknown
     Route: 065
     Dates: start: 20120719, end: 201208
  2. ERBITUX [Suspect]
     Indication: SQUAMOUS CELL CARCINOMA
     Route: 042
     Dates: start: 20120719, end: 20120801
  3. CARBOPLATINE [Suspect]
     Indication: SQUAMOUS CELL CARCINOMA
     Route: 042
     Dates: start: 20120719, end: 20120719
  4. FLUOROURACIL [Suspect]
     Indication: SQUAMOUS CELL CARCINOMA
     Route: 042
     Dates: start: 20120719, end: 20120719
  5. METHYLPREDNISOLONE [Suspect]
     Indication: SQUAMOUS CELL CARCINOMA
     Route: 042
     Dates: start: 20120719, end: 20120801
  6. INIPOMP [Concomitant]
     Dosage: 40MG Per day
     Route: 048
     Dates: start: 20120716
  7. SKENAN [Concomitant]
  8. ACTISKENAN [Concomitant]
  9. DIFFU K [Concomitant]
  10. TRANSIPEG [Concomitant]
  11. IMOVANE [Concomitant]
  12. MAG-2 [Concomitant]
     Dosage: 2SAC Twice per day
     Route: 048
  13. NUTRISON ENERGY PLUS [Concomitant]
  14. ROCEPHINE [Concomitant]
     Dates: start: 20120722, end: 20120728
  15. CIFLOX [Concomitant]
     Dates: start: 20120722, end: 20120728
  16. FORLAX [Concomitant]

REACTIONS (2)
  - Grand mal convulsion [Recovering/Resolving]
  - Hypomagnesaemia [Recovering/Resolving]
